FAERS Safety Report 18261478 (Version 2)
Quarter: 2020Q4

REPORT INFORMATION
  Report Type: Spontaneous
  Country: DE (occurrence: DE)
  Receive Date: 20200914
  Receipt Date: 20201022
  Transmission Date: 20210113
  Serious: Yes (Other)
  Sender: FDA-Public Use
  Company Number: DE-SA-2020SA244731

PATIENT

DRUGS (2)
  1. CABLIVI [Suspect]
     Active Substance: CAPLACIZUMAB-YHDP
     Dosage: UNK, OVER DAY
     Route: 041
  2. RITUXIMAB. [Concomitant]
     Active Substance: RITUXIMAB

REACTIONS (4)
  - Platelet count decreased [Unknown]
  - Off label use [Unknown]
  - ADAMTS13 activity decreased [Unknown]
  - Thrombotic thrombocytopenic purpura [Unknown]
